FAERS Safety Report 5353576-4 (Version None)
Quarter: 2007Q2

REPORT INFORMATION
  Report Type: 
  Country: None (occurrence: None)
  Receive Date: 20070612
  Receipt Date: 20070601
  Transmission Date: 20071010
  Serious: Yes (Other)
  Sender: FDA-Public Use
  Company Number: SK-NOVOPROD-263812

PATIENT
  Age: 75 Year
  Sex: Female
  Weight: 92 kg

DRUGS (1)
  1. NOVOLOG MIX 70/30 [Suspect]
     Indication: DIABETES MELLITUS NON-INSULIN-DEPENDENT
     Dosage: 32 IU, QD
     Dates: start: 20070417, end: 20070507

REACTIONS (3)
  - ASTHENIA [None]
  - NAUSEA [None]
  - VERTIGO [None]
